FAERS Safety Report 16438983 (Version 1)
Quarter: 2019Q2

REPORT INFORMATION
  Report Type: Other
  Country: US (occurrence: BW)
  Receive Date: 20190617
  Receipt Date: 20190617
  Transmission Date: 20190711
  Serious: Yes (Death, Congenital Anomaly, Other)
  Sender: FDA-Public Use
  Company Number: US-MACLEODS PHARMACEUTICALS US LTD-MAC2019021637

PATIENT

DRUGS (4)
  1. EMTRIVA [Suspect]
     Active Substance: EMTRICITABINE
     Indication: HIV INFECTION
     Dosage: 1 COURSE DURING FIRST TRIMESTER
     Route: 064
     Dates: start: 20170322
  2. TENOFOVIR [Suspect]
     Active Substance: TENOFOVIR
     Indication: HIV INFECTION
     Dosage: 1 COURSE
     Route: 064
     Dates: start: 20170322
  3. TIVICAY [Suspect]
     Active Substance: DOLUTEGRAVIR SODIUM
     Indication: HIV INFECTION
     Dosage: 1 COURSE
     Route: 064
     Dates: start: 20170322
  4. LAMIVUDINE. [Suspect]
     Active Substance: LAMIVUDINE
     Indication: HIV INFECTION
     Dosage: 1 COURSE DURING THIRD TRIMESTER UNK
     Route: 064
     Dates: start: 20181008

REACTIONS (4)
  - Stillbirth [Fatal]
  - Meningocele [Fatal]
  - Foetal exposure during pregnancy [Fatal]
  - Spina bifida [Fatal]
